FAERS Safety Report 4760354-3 (Version None)
Quarter: 2005Q3

REPORT INFORMATION
  Report Type: 
  Country: None (occurrence: None)
  Receive Date: 20050902
  Receipt Date: 20050603
  Transmission Date: 20060218
  Serious: Yes (Hospitalization, Other)
  Sender: FDA-Public Use
  Company Number: HQWYE290307JUN05

PATIENT
  Age: 60 Year
  Sex: Female

DRUGS (4)
  1. ENBREL [Suspect]
     Indication: RHEUMATOID ARTHRITIS
     Dosage: UNKNOWN
     Route: 058
     Dates: start: 20041001
  2. DIAZEPAM [Concomitant]
  3. PREDNISONE TAB [Concomitant]
     Dates: start: 19990101
  4. LANSOPRAZOLE [Concomitant]

REACTIONS (4)
  - HEPATITIS [None]
  - PANCREATITIS [None]
  - SINUSITIS [None]
  - VASCULITIS [None]
